FAERS Safety Report 6347079-8 (Version None)
Quarter: 2009Q3

REPORT INFORMATION
  Report Type: 
  Country: None (occurrence: None)
  Receive Date: 20090910
  Receipt Date: 20090907
  Transmission Date: 20100115
  Serious: Yes (Hospitalization)
  Sender: FDA-Public Use
  Company Number: IT-WYE-G04388309

PATIENT
  Sex: Male

DRUGS (4)
  1. TORISEL [Suspect]
     Indication: RENAL CANCER
     Dosage: NOT PROVIDED
     Dates: start: 20090807, end: 20090814
  2. TRENTAL [Concomitant]
  3. ENAPREN [Concomitant]
  4. ASPIRIN [Concomitant]

REACTIONS (1)
  - ATRIAL FIBRILLATION [None]
